FAERS Safety Report 19503169 (Version 1)
Quarter: 2021Q3

REPORT INFORMATION
  Report Type: Spontaneous
  Country: US (occurrence: US)
  Receive Date: 20210707
  Receipt Date: 20210707
  Transmission Date: 20211014
  Serious: No
  Sender: FDA-Public Use
  Company Number: US-AMGEN-USASP2021102661

PATIENT

DRUGS (2)
  1. EVOLOCUMAB [Suspect]
     Active Substance: EVOLOCUMAB
     Indication: HYPERCHOLESTEROLAEMIA
     Dosage: 420 MILLIGRAM, QMO, 3.5 ML
     Route: 058
  2. BEMPEDOIC ACID. [Concomitant]
     Active Substance: BEMPEDOIC ACID
     Dosage: 180 MILLIGRAM

REACTIONS (10)
  - Adverse drug reaction [Unknown]
  - Infestation [Unknown]
  - Urinary tract infection [Unknown]
  - Amnesia [Unknown]
  - Ejaculation failure [Not Recovered/Not Resolved]
  - Muscle spasms [Unknown]
  - Musculoskeletal disorder [Unknown]
  - Connective tissue disorder [Unknown]
  - Infection [Unknown]
  - Adverse event [Unknown]
